FAERS Safety Report 10415859 (Version 1)
Quarter: 2014Q3

REPORT INFORMATION
  Report Type: Spontaneous
  Country: US (occurrence: None)
  Receive Date: 20140827
  Receipt Date: 20140827
  Transmission Date: 20150326
  Serious: Yes (Life-Threatening, Hospitalization)
  Sender: FDA-Public Use
  Company Number: None

PATIENT
  Age: 91 Year
  Sex: Female
  Weight: 74 kg

DRUGS (20)
  1. ASPIRIN. [Concomitant]
     Active Substance: ASPIRIN
  2. MUPIROCIN 2% NASAL OINTMENT [Concomitant]
  3. COENZYME Q10 [Concomitant]
     Active Substance: UBIDECARENONE
  4. LOVASTATIN. [Concomitant]
     Active Substance: LOVASTATIN
  5. CALCIUM CARBONATE WITH VITAMIN D [Concomitant]
     Active Substance: CALCIUM CARBONATE\ERGOCALCIFEROL
  6. FERROUS SULFATE [Concomitant]
     Active Substance: FERROUS SULFATE\FERROUS SULFATE, DRIED
  7. DIPHENHYDRAMINE [Concomitant]
     Active Substance: DIPHENHYDRAMINE
  8. WARFARIN [Suspect]
     Active Substance: WARFARIN
     Indication: ATRIAL FIBRILLATION
     Dosage: 1 TABLET, QD, PO.
  9. ALPRZOLAM [Concomitant]
  10. CARISOPRODOL. [Concomitant]
     Active Substance: CARISOPRODOL
  11. DILTIAZEM [Concomitant]
     Active Substance: DILTIAZEM
  12. NITROGLYCERINE SL TABLET [Concomitant]
  13. OMEGA-3 FATTY ACIDS [Concomitant]
     Active Substance: OMEGA-3 FATTY ACIDS
  14. SOTALOL. [Concomitant]
  15. ENOXAPARIN [Suspect]
     Active Substance: ENOXAPARIN
     Indication: SURGERY
     Route: 058
  16. CYANOCOBALAMIN. [Concomitant]
     Active Substance: CYANOCOBALAMIN
  17. HYDROCORTISONE 1% CREAM [Concomitant]
  18. LEVOTHYROXINE [Concomitant]
     Active Substance: LEVOTHYROXINE
  19. PERCOCET [Concomitant]
     Active Substance: ACETAMINOPHEN\OXYCODONE HYDROCHLORIDE
  20. CEPHALEXIN. [Concomitant]
     Active Substance: CEPHALEXIN

REACTIONS (6)
  - Pain in extremity [None]
  - Post procedural haematoma [None]
  - Lumbar spinal stenosis [None]
  - Back pain [None]
  - Post procedural complication [None]
  - Extradural haematoma [None]

NARRATIVE: CASE EVENT DATE: 20140729
